FAERS Safety Report 5124288-7 (Version None)
Quarter: 2006Q3

REPORT INFORMATION
  Report Type: 
  Country: None (occurrence: None)
  Receive Date: 20060816
  Receipt Date: 20060517
  Transmission Date: 20061208
  Serious: No
  Sender: FDA-Public Use
  Company Number: US200605002012

PATIENT
  Age: 22 Year
  Sex: Male

DRUGS (3)
  1. CIALIS [Suspect]
     Dosage: 20 MG AS NEEDED
     Dates: start: 20060507
  2. MARIJUANA (CANNABIS) [Concomitant]
  3. IBUPROFEN [Concomitant]

REACTIONS (4)
  - DRY MOUTH [None]
  - HEADACHE [None]
  - PALPITATIONS [None]
  - THERAPEUTIC RESPONSE DECREASED [None]
